FAERS Safety Report 17733268 (Version 1)
Quarter: 2020Q2

REPORT INFORMATION
  Report Type: Spontaneous
  Country: US (occurrence: US)
  Receive Date: 20200430
  Receipt Date: 20200430
  Transmission Date: 20200714
  Serious: Yes (Hospitalization)
  Sender: FDA-Public Use
  Company Number: None

PATIENT
  Age: 53 Year
  Sex: Male
  Weight: 106 kg

DRUGS (3)
  1. METOPROLOL (METOPROLOL (SUCCINATE 25MG TAB SA) [Suspect]
     Active Substance: METOPROLOL SUCCINATE
     Indication: MITRAL VALVE REPLACEMENT
     Route: 048
     Dates: start: 20200205, end: 20200206
  2. SOTALOL (SOTALOL HCL 80MG TAB) [Suspect]
     Active Substance: SOTALOL HYDROCHLORIDE
     Indication: MITRAL VALVE REPLACEMENT
     Route: 048
     Dates: start: 20200204, end: 20200204
  3. SOTALOL (SOTALOL HCL 80MG TAB) [Suspect]
     Active Substance: SOTALOL HYDROCHLORIDE
     Indication: ATRIAL FIBRILLATION
     Route: 048
     Dates: start: 20200204, end: 20200204

REACTIONS (3)
  - Confusional state [None]
  - Hyperhidrosis [None]
  - Hypotension [None]
